FAERS Safety Report 23364872 (Version 6)
Quarter: 2025Q2

REPORT INFORMATION
  Report Type: Spontaneous
  Country: US (occurrence: US)
  Receive Date: 20240104
  Receipt Date: 20250630
  Transmission Date: 20250717
  Serious: No
  Sender: BIOGEN
  Company Number: US-BIOGEN-2024BI01243319

PATIENT
  Age: 70 Year
  Sex: Male

DRUGS (5)
  1. VUMERITY [Suspect]
     Active Substance: DIROXIMEL FUMARATE
     Indication: Multiple sclerosis
     Dosage: TAKE 1 CAPSULE BY MOUTH TWICE A DAY FOR 7 DAYS THEN 2 CAPSULES BY MOUTH TWICE A DAY THEREAFTER
     Route: 050
     Dates: start: 20231220
  2. VUMERITY [Suspect]
     Active Substance: DIROXIMEL FUMARATE
     Route: 050
  3. VUMERITY [Suspect]
     Active Substance: DIROXIMEL FUMARATE
     Route: 050
  4. COPAXONE [Concomitant]
     Active Substance: GLATIRAMER ACETATE
     Route: 050
  5. CELECOXIB [Concomitant]
     Active Substance: CELECOXIB
     Route: 050

REACTIONS (12)
  - Product dose omission issue [Unknown]
  - Chest discomfort [Unknown]
  - Palpitations [Unknown]
  - Dyspnoea [Unknown]
  - Anxiety [Unknown]
  - Insomnia [Unknown]
  - Mastication disorder [Unknown]
  - Dysphagia [Unknown]
  - Sputum retention [Unknown]
  - Presyncope [Unknown]
  - Eating disorder [Unknown]
  - Flushing [Unknown]

NARRATIVE: CASE EVENT DATE: 20231222
